FAERS Safety Report 4662012-2 (Version None)
Quarter: 2005Q2

REPORT INFORMATION
  Report Type: 
  Country: None (occurrence: None)
  Receive Date: 20050512
  Receipt Date: 20050512
  Transmission Date: 20051028
  Serious: No
  Sender: FDA-Public Use
  Company Number: None

PATIENT
  Age: 67 Year
  Sex: Female
  Weight: 98.8842 kg

DRUGS (1)
  1. ZICAM NASAL SPRAY [Suspect]

REACTIONS (3)
  - AGEUSIA [None]
  - ANOSMIA [None]
  - VIRAL INFECTION [None]
